FAERS Safety Report 19970509 (Version 1)
Quarter: 2021Q4

REPORT INFORMATION
  Report Type: Spontaneous
  Country: GB (occurrence: GB)
  Receive Date: 20211019
  Receipt Date: 20211019
  Transmission Date: 20220303
  Serious: Yes (Other)
  Sender: FDA-Public Use
  Company Number: GB-MERCK HEALTHCARE KGAA-9270296

PATIENT
  Age: 50 Year

DRUGS (5)
  1. AVELUMAB [Suspect]
     Active Substance: AVELUMAB
     Indication: Product used for unknown indication
     Route: 042
  2. AXITINIB [Suspect]
     Active Substance: AXITINIB
     Indication: Product used for unknown indication
     Route: 048
     Dates: start: 20191213
  3. AXITINIB [Suspect]
     Active Substance: AXITINIB
     Route: 048
     Dates: start: 202002
  4. AXITINIB [Suspect]
     Active Substance: AXITINIB
     Route: 048
     Dates: start: 202003
  5. AXITINIB [Suspect]
     Active Substance: AXITINIB
     Route: 048
     Dates: start: 202004

REACTIONS (6)
  - Stomatitis [Recovering/Resolving]
  - Palmar-plantar erythrodysaesthesia syndrome [Recovering/Resolving]
  - Blood creatinine increased [Recovering/Resolving]
  - Pulmonary hilum mass [Unknown]
  - Diarrhoea [Recovering/Resolving]
  - Diarrhoea [Recovering/Resolving]

NARRATIVE: CASE EVENT DATE: 20200401
